FAERS Safety Report 10279827 (Version 1)
Quarter: 2014Q3

REPORT INFORMATION
  Report Type: Spontaneous
  Country: US (occurrence: None)
  Receive Date: 20140702
  Receipt Date: 20140702
  Transmission Date: 20150326
  Serious: Yes (Hospitalization)
  Sender: FDA-Public Use
  Company Number: None

PATIENT
  Age: 45 Year
  Sex: Female
  Weight: 107.9 kg

DRUGS (1)
  1. TEGRETOL [Suspect]
     Active Substance: CARBAMAZEPINE
     Indication: BIPOLAR DISORDER
     Route: 048

REACTIONS (8)
  - Coordination abnormal [None]
  - Dysarthria [None]
  - Somnolence [None]
  - Drug level increased [None]
  - Drooling [None]
  - Gait disturbance [None]
  - Ataxia [None]
  - Tremor [None]

NARRATIVE: CASE EVENT DATE: 20140602
